FAERS Safety Report 16593154 (Version 2)
Quarter: 2019Q3

REPORT INFORMATION
  Report Type: Report from Study
  Country: US (occurrence: US)
  Receive Date: 20190718
  Receipt Date: 20190806
  Transmission Date: 20191004
  Serious: Yes (Hospitalization)
  Sender: FDA-Public Use
  Company Number: US-ADAMAS PHARMA, LLC-2019ADA01491

PATIENT
  Age: 75 Year
  Sex: Female
  Weight: 45.35 kg

DRUGS (17)
  1. ASPIRIN. [Concomitant]
     Active Substance: ASPIRIN
     Dosage: 81 MG, 1X/DAY
     Route: 048
  2. GOCOVRI [Suspect]
     Active Substance: AMANTADINE
     Indication: DYSKINESIA
     Dosage: 68.5 MG, 1X/DAY AT BEDTIME
     Route: 048
     Dates: start: 20190615
  3. VITAMIN D3 [Concomitant]
     Active Substance: CHOLECALCIFEROL
  4. VITAMIN C [Concomitant]
     Active Substance: ASCORBIC ACID
     Dosage: 500 MG, 1X/DAY
     Route: 048
  5. GOCOVRI [Suspect]
     Active Substance: AMANTADINE
     Indication: DYSKINESIA
     Dosage: 137 MG, 1X/DAY AT NIGHT
     Route: 048
     Dates: start: 20190510, end: 20190516
  6. SINEMET [Concomitant]
     Active Substance: CARBIDOPA\LEVODOPA
  7. GLUCOSAMINE [Concomitant]
     Active Substance: GLUCOSAMINE
     Dosage: 3 CAPSULES, 1X/DAY
     Route: 048
  8. ATORVASTATIN [Concomitant]
     Active Substance: ATORVASTATIN
     Dosage: 20 MG, 1X/DAY
     Route: 048
  9. CARBIDOPA/LEVODOPA [Concomitant]
     Active Substance: CARBIDOPA\LEVODOPA
     Dosage: 1 TABLETS, 3X/DAY
     Route: 048
  10. CALCIUM + VITAMIN D [Concomitant]
     Active Substance: CALCIUM\VITAMIN D
     Dosage: 1 TABLET, 1X/DAY
     Route: 048
  11. GOCOVRI [Suspect]
     Active Substance: AMANTADINE
     Dosage: 274 MG, 1X/DAY
     Route: 048
     Dates: start: 20190517, end: 2019
  12. COLACE [Concomitant]
     Active Substance: DOCUSATE SODIUM
     Indication: CONSTIPATION
     Dosage: 100 MG, 2X/DAY AS NEEDED
     Route: 048
  13. VITAMIN D3 [Concomitant]
     Active Substance: CHOLECALCIFEROL
     Dosage: 1 TABLET, 5X/WEEK
     Route: 048
  14. FISH OIL [Concomitant]
     Active Substance: FISH OIL
  15. CHONDROITIN [Concomitant]
     Active Substance: CHONDROITIN
     Dosage: 1200 UNK, 1X/DAY
     Route: 048
  16. NITROFURANTOIN. [Concomitant]
     Active Substance: NITROFURANTOIN
     Dosage: 100 MG, AS NEEDED
     Route: 048
  17. MULTIPLE VITAMIN [Concomitant]
     Active Substance: VITAMINS

REACTIONS (8)
  - Delusion [Unknown]
  - Tremor [Recovering/Resolving]
  - Hemiparesis [Recovered/Resolved]
  - Memory impairment [Recovering/Resolving]
  - Hyperlipidaemia [Not Recovered/Not Resolved]
  - Hallucination, visual [Recovered/Resolved]
  - Unresponsive to stimuli [Recovered/Resolved]
  - Balance disorder [Not Recovered/Not Resolved]

NARRATIVE: CASE EVENT DATE: 2019
